FAERS Safety Report 7760792-0 (Version None)
Quarter: 2011Q3

REPORT INFORMATION
  Report Type: 
  Country: None (occurrence: None)
  Receive Date: 20110919
  Receipt Date: 20110915
  Transmission Date: 20111222
  Serious: Yes (Congenital Anomaly, Other)
  Sender: FDA-Public Use
  Company Number: US-PFIZER INC-2011151171

PATIENT
  Sex: Male
  Weight: 2.88 kg

DRUGS (10)
  1. ZOLOFT [Suspect]
     Indication: ANXIETY
     Dosage: 25 MG DAILY
     Route: 064
     Dates: start: 19991208, end: 19991201
  2. ZOLOFT [Suspect]
     Dosage: 100 MG, 2X/DAY
     Route: 064
     Dates: start: 20000717
  3. ZOLOFT [Suspect]
     Indication: DEPRESSION
     Dosage: 50 MG DAILY
     Route: 064
     Dates: start: 19991223
  4. ZOLOFT [Suspect]
     Dosage: 150 MG DAILY
     Route: 064
     Dates: start: 20000615
  5. ZOLOFT [Suspect]
     Dosage: 100 MG DAILY
     Route: 064
     Dates: start: 20000316
  6. ZOLOFT [Suspect]
     Dosage: 100 MG DAILY
     Route: 064
     Dates: start: 20000601
  7. ZOLOFT [Suspect]
     Dosage: 100 MG ONE AND HALF TABLET AT BED TIME
     Route: 064
     Dates: start: 20000418
  8. ZOLOFT [Suspect]
     Dosage: 100 MG TWO TABLETS DAILY
     Route: 064
     Dates: start: 20010125
  9. ZOLOFT [Suspect]
     Dosage: 100 MG ONE AND HALF TABLET DAILY
     Route: 064
     Dates: start: 20001101
  10. ZOLOFT [Suspect]
     Dosage: 50 MG DAILY
     Route: 064
     Dates: start: 20000208

REACTIONS (6)
  - CLEFT PALATE [None]
  - MATERNAL EXPOSURE DURING PREGNANCY [None]
  - CLEFT LIP [None]
  - STREPTOCOCCAL INFECTION [None]
  - ORAL CANDIDIASIS [None]
  - SLEEP DISORDER [None]
